FAERS Safety Report 19931493 (Version 3)
Quarter: 2021Q4

REPORT INFORMATION
  Report Type: Spontaneous
  Country: PL (occurrence: PL)
  Receive Date: 20211008
  Receipt Date: 20211028
  Transmission Date: 20220303
  Serious: Yes (Life-Threatening, Hospitalization, Other)
  Sender: FDA-Public Use
  Company Number: PL-VELOXIS PHARMACEUTICALS-2021VELPL-000705

PATIENT
  Age: 39 Year
  Sex: Female

DRUGS (9)
  1. TACROLIMUS [Suspect]
     Active Substance: TACROLIMUS
     Indication: Immunosuppression
     Dosage: UNK
     Route: 065
  2. PREDNISONE [Suspect]
     Active Substance: PREDNISONE
     Indication: Immunosuppression
     Dosage: UNK
     Route: 048
  3. CYCLOSPORINE [Suspect]
     Active Substance: CYCLOSPORINE
     Indication: Immunosuppression
     Dosage: UNK
     Route: 065
     Dates: start: 201603
  4. CYCLOPHOSPHAMIDE [Suspect]
     Active Substance: CYCLOPHOSPHAMIDE
     Indication: Immunosuppression
     Dosage: UNK
     Route: 065
     Dates: start: 201603
  5. MYCOPHENOLATE MOFETIL [Suspect]
     Active Substance: MYCOPHENOLATE MOFETIL
     Indication: Immunosuppression
     Dosage: UNK
     Route: 065
     Dates: start: 201603
  6. MYCOPHENOLATE SODIUM [Suspect]
     Active Substance: MYCOPHENOLATE SODIUM
     Indication: Immunosuppression
     Dosage: UNK
     Route: 065
  7. EVEROLIMUS [Suspect]
     Active Substance: EVEROLIMUS
     Indication: Immunosuppression
     Dosage: UNK
     Route: 065
  8. DEXAMETHASONE [Suspect]
     Active Substance: DEXAMETHASONE
     Indication: Immunosuppression
     Dosage: UNK
     Route: 042
  9. VALGANCICLOVIR [Suspect]
     Active Substance: VALGANCICLOVIR
     Indication: Cytomegalovirus infection
     Dosage: UNK
     Route: 065

REACTIONS (10)
  - Haemophagocytic lymphohistiocytosis [Recovering/Resolving]
  - Systemic lupus erythematosus [Unknown]
  - Pulmonary cavitation [Unknown]
  - Cytomegalovirus infection [Recovered/Resolved]
  - Epstein-Barr virus infection [Unknown]
  - Alpha haemolytic streptococcal infection [Unknown]
  - Escherichia infection [Unknown]
  - Pneumonia fungal [Unknown]
  - Pancytopenia [Unknown]
  - Off label use [Unknown]

NARRATIVE: CASE EVENT DATE: 20180901
